FAERS Safety Report 6633324-8 (Version None)
Quarter: 2010Q1

REPORT INFORMATION
  Report Type: 
  Country: None (occurrence: None)
  Receive Date: 20100312
  Receipt Date: 20100301
  Transmission Date: 20100710
  Serious: Yes (Hospitalization, Other)
  Sender: FDA-Public Use
  Company Number: JP-PFIZER INC-2010026695

PATIENT
  Age: 29 Year
  Sex: Female

DRUGS (1)
  1. SOLANAX [Suspect]
     Dosage: UNK
     Route: 048

REACTIONS (4)
  - LOSS OF CONSCIOUSNESS [None]
  - OVERDOSE [None]
  - PYREXIA [None]
  - SUICIDE ATTEMPT [None]
